FAERS Safety Report 18954461 (Version 7)
Quarter: 2022Q1

REPORT INFORMATION
  Report Type: Spontaneous
  Country: US (occurrence: US)
  Receive Date: 20210301
  Receipt Date: 20220228
  Transmission Date: 20220423
  Serious: Yes (Other)
  Sender: FDA-Public Use
  Company Number: US-PFIZER INC-2021143300

PATIENT
  Age: 70 Year
  Sex: Female

DRUGS (1)
  1. XELJANZ XR [Suspect]
     Active Substance: TOFACITINIB CITRATE
     Dosage: 11 MG

REACTIONS (6)
  - Hip surgery [Unknown]
  - Spinal operation [Unknown]
  - Back disorder [Unknown]
  - Arthralgia [Unknown]
  - Post procedural complication [Unknown]
  - Back pain [Unknown]
